FAERS Safety Report 8554924-4 (Version None)
Quarter: 2012Q3

REPORT INFORMATION
  Report Type: 
  Country: None (occurrence: None)
  Receive Date: 20120731
  Receipt Date: 20120716
  Transmission Date: 20120928
  Serious: No
  Sender: FDA-Public Use
  Company Number: US-ASTRAZENECA-2012SE49194

PATIENT
  Age: 64 Year
  Sex: Male
  Weight: 77.1 kg

DRUGS (11)
  1. TOPROL-XL [Concomitant]
     Route: 048
  2. TESTIM [Concomitant]
  3. ASPIRIN [Concomitant]
  4. VISTERIL [Concomitant]
  5. BENICAR HCT [Concomitant]
  6. SIMVASTATIN [Concomitant]
  7. PLAVIX [Concomitant]
  8. VIAGRA [Concomitant]
  9. NITROGLYCERIN [Concomitant]
     Dosage: PRN
  10. SEROQUEL [Suspect]
     Route: 048
  11. LEXAPRO [Concomitant]

REACTIONS (14)
  - AGGRESSION [None]
  - IRRITABILITY [None]
  - IMPULSE-CONTROL DISORDER [None]
  - AMNESIA [None]
  - RESTLESSNESS [None]
  - HOSTILITY [None]
  - SPEECH DISORDER [None]
  - ANXIETY [None]
  - DRUG DOSE OMISSION [None]
  - AGITATION [None]
  - PANIC ATTACK [None]
  - INTENTIONAL DRUG MISUSE [None]
  - BALANCE DISORDER [None]
  - DISTURBANCE IN ATTENTION [None]
